FAERS Safety Report 16963602 (Version 1)
Quarter: 2019Q4

REPORT INFORMATION
  Report Type: Spontaneous
  Country: US (occurrence: US)
  Receive Date: 20191025
  Receipt Date: 20191025
  Transmission Date: 20200122
  Serious: Yes (Other)
  Sender: FDA-Public Use
  Company Number: US-TARO-2019TAR00646

PATIENT
  Sex: Female
  Weight: 65.76 kg

DRUGS (3)
  1. PHENOBARBITAL. [Concomitant]
     Active Substance: PHENOBARBITAL
  2. UNSPECIFIED MEDICATIONS [Concomitant]
     Active Substance: UNSPECIFIED INGREDIENT
  3. PHENYTOIN SODIUM EXTENDED [Suspect]
     Active Substance: PHENYTOIN SODIUM
     Indication: SEIZURE
     Dosage: 200 MG, 1X/DAY EACH NIGHT
     Route: 048

REACTIONS (6)
  - Drug ineffective [Recovered/Resolved]
  - Speech disorder [Recovered/Resolved]
  - Reaction to colouring [Recovered/Resolved]
  - Seizure [Recovered/Resolved]
  - Bladder spasm [Recovered/Resolved]
  - Product substitution issue [Recovered/Resolved]
